FAERS Safety Report 7278978-0 (Version None)
Quarter: 2011Q1

REPORT INFORMATION
  Report Type: 
  Country: None (occurrence: None)
  Receive Date: 20110207
  Receipt Date: 20110126
  Transmission Date: 20110831
  Serious: Yes (Other)
  Sender: FDA-Public Use
  Company Number: PHHY2011IT08184

PATIENT
  Sex: Female

DRUGS (5)
  1. ZOMETA [Suspect]
     Dosage: 4 MG, PER 5 ML
     Route: 042
     Dates: start: 20100701, end: 20101215
  2. FASLODEX [Concomitant]
  3. URBASON [Concomitant]
  4. FEMARA [Concomitant]
  5. ZOMETA [Suspect]
     Indication: METASTASES TO BONE
     Dosage: 4 MG, PER 5 ML
     Route: 042
     Dates: start: 20091201, end: 20100601

REACTIONS (2)
  - OSTEONECROSIS OF JAW [None]
  - TOOTH AVULSION [None]
